FAERS Safety Report 8241054-4 (Version None)
Quarter: 2012Q1

REPORT INFORMATION
  Report Type: 
  Country: None (occurrence: None)
  Receive Date: 20120328
  Receipt Date: 20120320
  Transmission Date: 20120608
  Serious: Yes (Hospitalization)
  Sender: FDA-Public Use
  Company Number: US-BAYER-2011-094661

PATIENT
  Age: 27 Year
  Sex: Female
  Weight: 81 kg

DRUGS (4)
  1. PERCOCET [Concomitant]
  2. NICOTROL [Concomitant]
  3. SIMVASTATIN [Concomitant]
  4. YAZ [Suspect]
     Indication: CONTRACEPTION
     Dosage: UNK
     Dates: start: 20090320, end: 20090621

REACTIONS (16)
  - ASTHENIA [None]
  - FATIGUE [None]
  - BACK PAIN [None]
  - CHEST PAIN [None]
  - FEAR [None]
  - EMOTIONAL DISTRESS [None]
  - MUSCLE SPASMS [None]
  - HYPOPNOEA [None]
  - PULMONARY EMBOLISM [None]
  - GENERAL PHYSICAL HEALTH DETERIORATION [None]
  - AGITATION [None]
  - DEPRESSION [None]
  - HYPERHIDROSIS [None]
  - CRYING [None]
  - ANXIETY [None]
  - INJURY [None]
